FAERS Safety Report 13738522 (Version 1)
Quarter: 2017Q3

REPORT INFORMATION
  Report Type: Spontaneous
  Country: US (occurrence: US)
  Receive Date: 20170710
  Receipt Date: 20170710
  Transmission Date: 20171127
  Serious: Yes (Other)
  Sender: FDA-Public Use
  Company Number: US-SAOL THERAPEUTICS-2017SAO00003

PATIENT
  Sex: Male
  Weight: 87.4 kg

DRUGS (1)
  1. LIORESAL [Suspect]
     Active Substance: BACLOFEN
     Indication: MUSCLE SPASTICITY
     Dosage: 240 ?G, \DAY
     Dates: start: 20161229

REACTIONS (2)
  - Therapy non-responder [Recovered/Resolved]
  - Device issue [Recovered/Resolved]
